FAERS Safety Report 12581800 (Version 1)
Quarter: 2016Q3

REPORT INFORMATION
  Report Type: Spontaneous
  Country: DE (occurrence: DE)
  Receive Date: 20160722
  Receipt Date: 20160722
  Transmission Date: 20161109
  Serious: Yes (Congenital Anomaly, Other)
  Sender: FDA-Public Use
  Company Number: DE-DRREDDYS-GER/GER/16/0081516

PATIENT
  Age: 0 Year
  Sex: Male
  Weight: 3.11 kg

DRUGS (6)
  1. METHYLDOPA. [Suspect]
     Active Substance: METHYLDOPA
     Indication: HYPERTENSION
     Dosage: 750 (MG/D )/ 250-0-500 MG/D
     Route: 064
  2. VENLAFAXINE [Suspect]
     Active Substance: VENLAFAXINE HYDROCHLORIDE
     Indication: PERINATAL DEPRESSION
     Dosage: 225 (MG/D (BIS 150 MG/D))/ DOSE REDUCTION TO 150 MG/D IN WEEK 12.
     Route: 064
     Dates: start: 20150525, end: 20160224
  3. FEMIBION SCHWANGERSCHAFT 2 [Concomitant]
     Indication: VITAMIN SUPPLEMENTATION
     Route: 064
  4. AMLODIPINE [Suspect]
     Active Substance: AMLODIPINE BESYLATE
     Indication: HYPERTENSION
     Route: 064
  5. EXFORGE [Concomitant]
     Active Substance: AMLODIPINE BESYLATE\VALSARTAN
     Indication: HYPERTENSION
     Route: 064
  6. BISOPROLOL [Concomitant]
     Active Substance: BISOPROLOL
     Indication: HYPERTENSION
     Route: 064

REACTIONS (4)
  - Atrial septal defect [Recovering/Resolving]
  - Umbilical cord around neck [Unknown]
  - Aortic valve stenosis [Not Recovered/Not Resolved]
  - Foetal exposure during pregnancy [Recovered/Resolved]
